FAERS Safety Report 15565131 (Version 1)
Quarter: 2018Q4

REPORT INFORMATION
  Report Type: Spontaneous
  Country: US (occurrence: US)
  Receive Date: 20181030
  Receipt Date: 20181030
  Transmission Date: 20190205
  Serious: No
  Sender: FDA-Public Use
  Company Number: PHHY2018US140617

PATIENT
  Age: 30 Year
  Sex: Male

DRUGS (1)
  1. COSENTYX [Suspect]
     Active Substance: SECUKINUMAB
     Indication: PSORIASIS
     Dosage: 150 MG, QMO, BENEATH THE SKIN
     Route: 058
     Dates: start: 20170906

REACTIONS (2)
  - Product selection error [Unknown]
  - Psoriasis [Unknown]

NARRATIVE: CASE EVENT DATE: 20180204
